FAERS Safety Report 11359200 (Version 1)
Quarter: 2015Q3

REPORT INFORMATION
  Report Type: Report from Study
  Country: US (occurrence: US)
  Receive Date: 20150807
  Receipt Date: 20150807
  Transmission Date: 20151125
  Serious: No
  Sender: FDA-Public Use
  Company Number: US-GLAXOSMITHKLINE-US2015GSK113958

PATIENT
  Sex: Male

DRUGS (1)
  1. FLUTICASONE FUROATE NASAL SPRAY [Suspect]
     Active Substance: FLUTICASONE FUROATE
     Indication: MULTIPLE ALLERGIES
     Dosage: UNK, U

REACTIONS (1)
  - Epistaxis [Unknown]
